FAERS Safety Report 4366496-9 (Version None)
Quarter: 2004Q2

REPORT INFORMATION
  Report Type: 
  Country: None (occurrence: None)
  Receive Date: 20040527
  Receipt Date: 20040423
  Transmission Date: 20050107
  Serious: No
  Sender: FDA-Public Use
  Company Number: US-BRISTOL-MYERS SQUIBB COMPANY-12570362

PATIENT
  Age: 75 Year
  Sex: Male
  Weight: 93 kg

DRUGS (12)
  1. ERBITUX [Suspect]
     Indication: COLON CANCER METASTATIC
     Route: 042
     Dates: start: 20040407, end: 20040407
  2. BENADRYL [Concomitant]
     Indication: PREMEDICATION
     Route: 048
     Dates: start: 20040407, end: 20040407
  3. KYTRIL [Concomitant]
     Indication: PREMEDICATION
     Route: 048
     Dates: start: 20040407, end: 20040407
  4. CAMPTOSAR [Concomitant]
     Route: 042
  5. ATIVAN [Concomitant]
     Dosage: EVERY 4-6 HOURS AS NEEDED.
     Route: 060
  6. CALCIUM [Concomitant]
  7. CALCIUM + VITAMIN D [Concomitant]
     Dosage: CALCIUM 500 MG + VITAMIN D 200 MG.
  8. DYAZIDE [Concomitant]
     Dosage: 3705 MG/25 MG
  9. REMERON [Concomitant]
  10. SYNTHROID [Concomitant]
  11. TIAZAC [Concomitant]
  12. ZOFRAN [Concomitant]
     Dosage: EVERY 12 HOURS FOR 3 DAYS POST CHEMOTHERAPY

REACTIONS (2)
  - DERMATITIS ACNEIFORM [None]
  - DIARRHOEA [None]
